FAERS Safety Report 23553695 (Version 1)
Quarter: 2024Q1

REPORT INFORMATION
  Report Type: Spontaneous
  Country: US (occurrence: None)
  Receive Date: 20240221
  Receipt Date: 20240221
  Transmission Date: 20240410
  Serious: Yes (Other)
  Sender: FDA-Public Use
  Company Number: None

PATIENT
  Age: 53 Year
  Sex: Female
  Weight: 58.5 kg

DRUGS (1)
  1. PAXLOVID [Suspect]
     Active Substance: NIRMATRELVIR\RITONAVIR
     Indication: COVID-19
     Dosage: 3 TABLETS TWICE A DAY ORAL?
     Route: 048
     Dates: start: 20240216, end: 20240217

REACTIONS (11)
  - Paraesthesia oral [None]
  - Oral discomfort [None]
  - Swollen tongue [None]
  - Tongue discomfort [None]
  - Dysphagia [None]
  - Tinnitus [None]
  - Asthenia [None]
  - Dizziness [None]
  - Gait disturbance [None]
  - White blood cell count increased [None]
  - Back pain [None]

NARRATIVE: CASE EVENT DATE: 20240216
